FAERS Safety Report 21515589 (Version 2)
Quarter: 2022Q4

REPORT INFORMATION
  Report Type: Spontaneous
  Country: AR (occurrence: AR)
  Receive Date: 20221027
  Receipt Date: 20221124
  Transmission Date: 20230113
  Serious: Yes (Other)
  Sender: FDA-Public Use
  Company Number: AR-NOVARTISPH-NVSC2022AR240850

PATIENT
  Age: 39 Year
  Sex: Male

DRUGS (5)
  1. ADALIMUMAB [Suspect]
     Active Substance: ADALIMUMAB
     Indication: Behcet^s syndrome
     Dosage: 40 MG
     Route: 058
  2. CYCLOPHOSPHAMIDE [Suspect]
     Active Substance: CYCLOPHOSPHAMIDE
     Indication: Behcet^s syndrome
     Dosage: 1 G
     Route: 042
  3. MEPREDNISONE [Concomitant]
     Active Substance: MEPREDNISONE
     Indication: Behcet^s syndrome
     Dosage: 80 MG, QD
     Route: 065
  4. MEPREDNISONE [Concomitant]
     Active Substance: MEPREDNISONE
     Dosage: 60 MG, QD
     Route: 048
  5. METHYLPREDNISOLONE [Concomitant]
     Active Substance: METHYLPREDNISOLONE
     Indication: Behcet^s syndrome
     Dosage: 1 G, QD (PULSES)
     Route: 065

REACTIONS (3)
  - Behcet^s syndrome [Unknown]
  - Disease progression [Unknown]
  - Drug ineffective for unapproved indication [Unknown]
